FAERS Safety Report 22656963 (Version 1)
Quarter: 2023Q2

REPORT INFORMATION
  Report Type: Report from Study
  Country: US (occurrence: US)
  Receive Date: 20230630
  Receipt Date: 20230630
  Transmission Date: 20230721
  Serious: Yes (Other)
  Sender: FDA-Public Use
  Company Number: US-Merck Healthcare KGaA-2023457598

PATIENT
  Sex: Female

DRUGS (1)
  1. REBIF [Suspect]
     Active Substance: INTERFERON BETA-1A
     Indication: Multiple sclerosis
     Dosage: REBIJECT II
     Route: 058
     Dates: start: 20061004

REACTIONS (9)
  - Lupus-like syndrome [Unknown]
  - Fatigue [Unknown]
  - Depression [Unknown]
  - Migraine [Unknown]
  - Pain [Unknown]
  - Hypoaesthesia [Unknown]
  - Incontinence [Unknown]
  - Weight increased [Unknown]
  - Oxygen saturation decreased [Unknown]
